FAERS Safety Report 9417749 (Version 1)
Quarter: 2013Q3

REPORT INFORMATION
  Report Type: Spontaneous
  Country: US (occurrence: US)
  Receive Date: 20130724
  Receipt Date: 20130724
  Transmission Date: 20140515
  Serious: Yes (Hospitalization)
  Sender: FDA-Public Use
  Company Number: US-GLAXOSMITHKLINE-A1033595A

PATIENT
  Age: 53 Year
  Sex: Female

DRUGS (4)
  1. COREG CR [Suspect]
     Indication: RESTRICTIVE CARDIOMYOPATHY
     Dosage: 20MG UNKNOWN
     Route: 048
     Dates: start: 2007
  2. CARVEDILOL [Suspect]
     Indication: RESTRICTIVE CARDIOMYOPATHY
     Dosage: 3.125MG TWICE PER DAY
     Route: 048
     Dates: start: 2007
  3. PEPCID AC [Concomitant]
  4. HEPARIN [Concomitant]

REACTIONS (13)
  - Brain neoplasm [Recovered/Resolved]
  - Angina pectoris [Recovered/Resolved]
  - Loss of consciousness [Recovered/Resolved]
  - Brain operation [Unknown]
  - Dyspnoea [Recovered/Resolved]
  - Nightmare [Recovered/Resolved]
  - Hypotension [Unknown]
  - Suffocation feeling [Recovered/Resolved]
  - Pain in jaw [Recovered/Resolved]
  - Fall [Recovered/Resolved]
  - Dizziness [Recovered/Resolved]
  - Therapeutic response decreased [Recovered/Resolved]
  - Drug administration error [Unknown]
